FAERS Safety Report 24371670 (Version 1)
Quarter: 2024Q3

REPORT INFORMATION
  Report Type: Spontaneous
  Country: US (occurrence: None)
  Receive Date: 20240926
  Receipt Date: 20240926
  Transmission Date: 20241016
  Serious: Yes (Hospitalization)
  Sender: Public
  Company Number: None

PATIENT
  Sex: Female

DRUGS (1)
  1. L-GLUTAMINE [Suspect]
     Active Substance: GLUTAMINE
     Indication: Sickle cell anaemia with crisis
     Dosage: FREQUENCY : TWICE A DAY;?
     Route: 048
     Dates: start: 202406

REACTIONS (1)
  - Haemoglobin decreased [None]
